FAERS Safety Report 9486794 (Version 2)
Quarter: 2013Q3

REPORT INFORMATION
  Report Type: Report from Study
  Country: US (occurrence: US)
  Receive Date: 20130829
  Receipt Date: 20130918
  Transmission Date: 20140515
  Serious: Yes (Other)
  Sender: FDA-Public Use
  Company Number: PHEH2013US018246

PATIENT
  Age: 47 Year
  Sex: Male
  Weight: 102.5 kg

DRUGS (3)
  1. GILENYA [Suspect]
     Indication: MULTIPLE SCLEROSIS
     Dosage: 0.5 MG, QD
     Route: 048
     Dates: start: 20120327, end: 20120809
  2. LOVASTATIN [Concomitant]
     Indication: BLOOD CHOLESTEROL INCREASED
     Dosage: 40 MG, QD
     Route: 048
  3. CIALIS [Concomitant]
     Route: 048

REACTIONS (5)
  - Conduction disorder [Unknown]
  - Condition aggravated [Unknown]
  - Atrial fibrillation [Unknown]
  - Palpitations [Not Recovered/Not Resolved]
  - Heart rate decreased [Unknown]
